FAERS Safety Report 7897313-8 (Version None)
Quarter: 2011Q4

REPORT INFORMATION
  Report Type: 
  Country: None (occurrence: None)
  Receive Date: 20111028
  Receipt Date: 20111028
  Transmission Date: 20120403
  Serious: Yes (Hospitalization)
  Sender: FDA-Public Use
  Company Number: ALL1-2011-02281

PATIENT
  Sex: Female

DRUGS (1)
  1. INTUNIV [Suspect]
     Indication: PRODUCT USED FOR UNKNOWN INDICATION
     Dosage: (TOOK 3 MG) ORAL
     Route: 048
     Dates: start: 20110701, end: 20110701

REACTIONS (2)
  - HYPERSOMNIA [None]
  - INTENTIONAL OVERDOSE [None]
